FAERS Safety Report 7044183-6 (Version None)
Quarter: 2010Q4

REPORT INFORMATION
  Report Type: 
  Country: None (occurrence: None)
  Receive Date: 20101013
  Receipt Date: 20101004
  Transmission Date: 20110411
  Serious: Yes (Other)
  Sender: FDA-Public Use
  Company Number: US-PFIZER INC-2010126466

PATIENT
  Sex: Female
  Weight: 77 kg

DRUGS (26)
  1. XALATAN [Suspect]
     Dosage: ONE DROP, EACH EYE DAILY AT NIGHT
     Route: 047
     Dates: start: 20090601, end: 20100101
  2. VALSARTAN [Concomitant]
     Indication: CARDIAC FAILURE CONGESTIVE
     Dosage: 80MG, UNK
     Route: 048
  3. FUROSEMIDE [Concomitant]
     Indication: FLUID RETENTION
     Dosage: 80 MG, UNK
     Route: 048
  4. HYDROCHLOROTHIAZIDE [Concomitant]
     Indication: DIURETIC THERAPY
     Dosage: 10 MG, 1X/DAY
     Route: 048
  5. TOPROL-XL [Concomitant]
     Indication: CARDIAC DISORDER
     Dosage: 50 MG, 1X/DAY
     Route: 048
  6. NEXIUM [Concomitant]
     Indication: GASTROOESOPHAGEAL REFLUX DISEASE
     Dosage: 40 MG, UNK
     Route: 048
  7. ACETYLSALICYLIC ACID [Concomitant]
     Dosage: 81MG, 2X/DAY
     Route: 048
  8. CRESTOR [Concomitant]
     Indication: CARDIAC DISORDER
     Dosage: 40MG, 1X/DAY
     Route: 048
  9. CRESTOR [Concomitant]
     Indication: BLOOD TRIGLYCERIDES INCREASED
  10. VICODIN [Concomitant]
     Indication: BACK PAIN
     Dosage: 5/500MG, AS NEEDED
     Route: 048
  11. VICODIN [Concomitant]
     Indication: PAIN IN EXTREMITY
  12. LEXAPRO [Concomitant]
     Indication: MAJOR DEPRESSION
     Dosage: 20MG, UNK
     Route: 048
  13. LEXAPRO [Concomitant]
     Indication: ANXIETY
  14. LEXAPRO [Concomitant]
     Indication: AFFECT LABILITY
  15. NITROGLYCERIN [Concomitant]
     Indication: CHEST PAIN
     Dosage: UNK
  16. LORAZEPAM [Concomitant]
     Dosage: 2 MG, UNK
     Route: 048
  17. OMEPRAZOLE [Concomitant]
     Indication: GASTROOESOPHAGEAL REFLUX DISEASE
     Dosage: 20MG, UNK
     Route: 048
  18. FLEXERIL [Concomitant]
     Indication: BACK INJURY
     Dosage: 10MG, UNK
     Route: 048
  19. PROMETHAZINE HYDROCHLORIDE [Concomitant]
     Indication: SLEEP DISORDER
     Dosage: 2 MG, AS NEEDED
     Route: 048
  20. PROMETHAZINE [Concomitant]
     Indication: SLEEP DISORDER
     Dosage: 6.25 MG/ML, AS NEEDED
  21. ATROVENT [Concomitant]
     Dosage: UNK, AS NEEDED
     Route: 045
  22. VALTREX [Concomitant]
     Indication: BLISTER
     Dosage: 500MG, UNK
     Route: 048
  23. HALCION [Concomitant]
     Indication: SLEEP DISORDER
     Dosage: 25MG, UNK
     Route: 048
  24. TRICOR [Concomitant]
     Indication: BLOOD TRIGLYCERIDES INCREASED
     Dosage: 145MG, 1X/DAY
     Route: 048
  25. POTASSIUM CHLORIDE [Concomitant]
     Dosage: 10MG, UNK
     Route: 048
  26. TIOTROPIUM BROMIDE [Concomitant]
     Dosage: UNK

REACTIONS (2)
  - EYE PAIN [None]
  - INTRAOCULAR PRESSURE DECREASED [None]
